FAERS Safety Report 5753554-7 (Version None)
Quarter: 2008Q2

REPORT INFORMATION
  Report Type: 
  Country: None (occurrence: None)
  Receive Date: 20080530
  Receipt Date: 20080522
  Transmission Date: 20081010
  Serious: Yes (Hospitalization, Disabling)
  Sender: FDA-Public Use
  Company Number: US-AVENTIS-200812409EU

PATIENT
  Age: 49 Year
  Sex: Male

DRUGS (11)
  1. ENOXAPARIN SODIUM [Suspect]
     Indication: THROMBOSIS PROPHYLAXIS
     Route: 058
     Dates: start: 20080416, end: 20080422
  2. PLACEBO [Suspect]
     Indication: THROMBOSIS PROPHYLAXIS
     Route: 048
     Dates: start: 20080416, end: 20080501
  3. RANITIDINE [Concomitant]
     Dates: start: 20080502
  4. CEFAZOLIN [Concomitant]
     Dates: start: 20080502
  5. EUPHYLLIN                          /00012201/ [Concomitant]
     Dates: start: 20080502
  6. ADRENALINE [Concomitant]
     Dates: start: 20080503
  7. FUROSEMIDE [Concomitant]
     Dates: start: 20080415
  8. DIGOXIN [Concomitant]
     Dates: start: 20080415, end: 20080415
  9. DEXTRAN [Concomitant]
     Dates: start: 20080416
  10. ASPARCAM                           /01580901/ [Concomitant]
     Dates: start: 20080416
  11. AMPICILLIN [Concomitant]
     Dates: start: 20080416

REACTIONS (2)
  - HEPATITIS TOXIC [None]
  - ISCHAEMIC HEPATITIS [None]
